FAERS Safety Report 9612913 (Version 2)
Quarter: 2013Q4

REPORT INFORMATION
  Report Type: Spontaneous
  Country: JP (occurrence: JP)
  Receive Date: 20131010
  Receipt Date: 20131224
  Transmission Date: 20140711
  Serious: Yes (Hospitalization)
  Sender: FDA-Public Use
  Company Number: JP-ELI_LILLY_AND_COMPANY-JP201310001087

PATIENT
  Age: 77 Year
  Sex: Female

DRUGS (3)
  1. FORTEO [Suspect]
     Indication: OSTEOPOROSIS
     Dosage: 20 UG, QD
     Route: 058
     Dates: start: 20121026, end: 201307
  2. LASIX                              /00032601/ [Concomitant]
     Dosage: UNK
     Dates: start: 20121207, end: 20130331
  3. ALDACTONE A [Concomitant]
     Dosage: UNK
     Dates: start: 20121207, end: 20130331

REACTIONS (4)
  - Pancreatitis acute [Unknown]
  - Appendicitis [Unknown]
  - Oedema peripheral [Unknown]
  - Insomnia [Unknown]
